FAERS Safety Report 5877860-0 (Version None)
Quarter: 2008Q3

REPORT INFORMATION
  Report Type: 
  Country: None (occurrence: None)
  Receive Date: 20080908
  Receipt Date: 20080908
  Transmission Date: 20090109
  Serious: Yes (Hospitalization)
  Sender: FDA-Public Use
  Company Number: None

PATIENT
  Sex: Female
  Weight: 86.8 kg

DRUGS (9)
  1. GABAPENTIN [Suspect]
     Indication: CONVULSION
     Dosage: 300MG THREE TIMES DAILY PO
     Route: 048
     Dates: start: 20080701, end: 20080708
  2. ASPIRIN [Concomitant]
  3. HYDRALAZINE HCL [Concomitant]
  4. LISINOPRIL [Concomitant]
  5. METOPROLOL TARTRATE [Concomitant]
  6. SIMVASTATIN [Concomitant]
  7. ISOSORBIDE MONONITRATE [Concomitant]
  8. SEVELAMER [Concomitant]
  9. CINACALCET [Concomitant]

REACTIONS (2)
  - PYREXIA [None]
  - STEVENS-JOHNSON SYNDROME [None]
